FAERS Safety Report 8998217 (Version 9)
Quarter: 2014Q4

REPORT INFORMATION
  Report Type: Spontaneous
  Country: US (occurrence: US)
  Receive Date: 20130104
  Receipt Date: 20141106
  Transmission Date: 20150529
  Serious: No
  Sender: FDA-Public Use
  Company Number: US-VERTEX PHARMACEUTICALS INC.-2013-000045

PATIENT
  Age: 52 Year
  Sex: Female
  Weight: 56 kg

DRUGS (25)
  1. AMBIEN [Concomitant]
     Active Substance: ZOLPIDEM TARTRATE
  2. NASONEX [Concomitant]
     Active Substance: MOMETASONE FUROATE
  3. MAXAIR [Concomitant]
     Active Substance: PIRBUTEROL ACETATE
  4. KALYDECO [Suspect]
     Active Substance: IVACAFTOR
     Dosage: 150 MG, BID
     Route: 048
     Dates: start: 20121102, end: 20121220
  5. KALYDECO [Suspect]
     Active Substance: IVACAFTOR
     Dosage: 150 MG, BID
     Route: 048
     Dates: start: 20121227, end: 20121231
  6. KALYDECO [Suspect]
     Active Substance: IVACAFTOR
     Dosage: 75 MG, BID
     Route: 048
     Dates: start: 20131109, end: 201405
  7. KALYDECO [Suspect]
     Active Substance: IVACAFTOR
     Dosage: 75 MG, BID
     Route: 048
     Dates: start: 2014, end: 2014
  8. DEXILANT [Concomitant]
     Active Substance: DEXLANSOPRAZOLE
  9. ATIVAN [Concomitant]
     Active Substance: LORAZEPAM
  10. ADVAIR HFA [Concomitant]
     Active Substance: FLUTICASONE PROPIONATE\SALMETEROL XINAFOATE
  11. KLONOPIN [Concomitant]
     Active Substance: CLONAZEPAM
  12. KALYDECO [Suspect]
     Active Substance: IVACAFTOR
     Indication: CYSTIC FIBROSIS
     Dosage: 150 MG, BID
     Route: 048
     Dates: start: 20120211
  13. KALYDECO [Suspect]
     Active Substance: IVACAFTOR
     Dosage: 1 AM, 0.5 PM
     Route: 048
     Dates: start: 2013, end: 2013
  14. KALYDECO [Suspect]
     Active Substance: IVACAFTOR
     Dosage: 75 MG, SINGLE
     Route: 048
     Dates: start: 20141103, end: 20141103
  15. LEXAPRO [Concomitant]
     Active Substance: ESCITALOPRAM OXALATE
  16. LAMICTAL [Concomitant]
     Active Substance: LAMOTRIGINE
  17. KALYDECO [Suspect]
     Active Substance: IVACAFTOR
     Dosage: 1 DF AM, QD
     Route: 048
     Dates: start: 2013, end: 2013
  18. PREVACID [Concomitant]
     Active Substance: LANSOPRAZOLE
  19. ASACOL [Concomitant]
     Active Substance: MESALAMINE
     Indication: LARGE INTESTINAL ULCER
  20. PANCREAZE [Concomitant]
     Active Substance: PANCRELIPASE
  21. CLARITIN [Concomitant]
     Active Substance: LORATADINE
  22. KALYDECO [Suspect]
     Active Substance: IVACAFTOR
     Dosage: UNK
     Route: 048
     Dates: start: 20131031
  23. PEPCID [Concomitant]
     Active Substance: FAMOTIDINE
  24. ADEKS [Concomitant]
  25. AMITIZA [Concomitant]
     Active Substance: LUBIPROSTONE
     Indication: IRRITABLE BOWEL SYNDROME

REACTIONS (4)
  - Rash [Recovered/Resolved]
  - Herpes zoster [Unknown]
  - Infective pulmonary exacerbation of cystic fibrosis [Recovering/Resolving]
  - Urticaria [Unknown]

NARRATIVE: CASE EVENT DATE: 20121219
